FAERS Safety Report 17477307 (Version 1)
Quarter: 2020Q1

REPORT INFORMATION
  Report Type: Report from Study
  Country: CA (occurrence: CA)
  Receive Date: 20200228
  Receipt Date: 20200228
  Transmission Date: 20200409
  Serious: Yes (Other)
  Sender: FDA-Public Use
  Company Number: CA-JNJFOC-20191131626

PATIENT
  Sex: Male
  Weight: 86.18 kg

DRUGS (1)
  1. STELARA [Suspect]
     Active Substance: USTEKINUMAB
     Indication: CROHN^S DISEASE
     Dosage: STRENGTH = 90 MG
     Route: 058
     Dates: start: 20190730

REACTIONS (5)
  - Dizziness [Unknown]
  - Intracranial mass [Unknown]
  - Back pain [Recovered/Resolved]
  - Hypertension [Recovering/Resolving]
  - Headache [Unknown]
